FAERS Safety Report 8896450 (Version 1)
Quarter: 2012Q4

REPORT INFORMATION
  Report Type: Spontaneous
  Country: US (occurrence: None)
  Receive Date: 20121107
  Receipt Date: 20121107
  Transmission Date: 20130627
  Serious: Yes (Other)
  Sender: FDA-Public Use
  Company Number: None

PATIENT
  Age: 53 Year
  Sex: Female
  Weight: 92.99 kg

DRUGS (16)
  1. NUVIGIL [Suspect]
     Indication: NARCOLEPSY
     Dosage: 1/2 - 150 mg. tablet Once po
     Route: 048
     Dates: start: 20120918, end: 20120918
  2. NUVIGIL [Suspect]
     Indication: NARCOLEPSY
     Dosage: 1 - 150 mg. tablet Once po
     Route: 048
     Dates: start: 20120919, end: 20120919
  3. XYREM [Concomitant]
  4. ARMOUR THYROID [Concomitant]
  5. MELATONIN [Concomitant]
  6. VITAMIN D-3 [Concomitant]
  7. MOOD SOLUTION [Concomitant]
  8. NIACIN [Concomitant]
  9. VIT. B6 [Concomitant]
  10. MEGA FISH OIL [Concomitant]
  11. SEROTONIC BLEND -PROPRIETARY AMINO ACIDS AND HERBS [Concomitant]
  12. NO ST. JOHNS WORT [Concomitant]
  13. MAGNESIUM OPTIMIZER -JARROW FORMULAS- [Concomitant]
  14. MAGNESIUM [Concomitant]
  15. POTASSIUM [Concomitant]
  16. TAURINE [Concomitant]

REACTIONS (22)
  - Nausea [None]
  - Rash macular [None]
  - Erythema [None]
  - Oedema peripheral [None]
  - Oedema peripheral [None]
  - Feeling hot [None]
  - Feeling hot [None]
  - Pruritus [None]
  - Pruritus [None]
  - Decreased appetite [None]
  - Fatigue [None]
  - Nervousness [None]
  - Anxiety [None]
  - Pulse pressure increased [None]
  - Thinking abnormal [None]
  - Abdominal pain upper [None]
  - Pain [None]
  - Back pain [None]
  - Hot flush [None]
  - Skin fissures [None]
  - Skin haemorrhage [None]
  - Heart rate increased [None]
